FAERS Safety Report 18549726 (Version 2)
Quarter: 2020Q4

REPORT INFORMATION
  Report Type: Spontaneous
  Country: US (occurrence: US)
  Receive Date: 20201126
  Receipt Date: 20201128
  Transmission Date: 20210114
  Serious: No
  Sender: FDA-Public Use
  Company Number: NVSC2020US312435

PATIENT
  Sex: Female

DRUGS (1)
  1. MEKINIST [Suspect]
     Active Substance: TRAMETINIB DIMETHYL SULFOXIDE
     Indication: PERIPHERAL NERVOUS SYSTEM NEOPLASM
     Dosage: 2 MG, BID
     Route: 048
     Dates: start: 20190517

REACTIONS (3)
  - Visual impairment [Unknown]
  - Neurofibromatosis [Unknown]
  - Product use in unapproved indication [Unknown]
